FAERS Safety Report 4364343-2 (Version None)
Quarter: 2004Q2

REPORT INFORMATION
  Report Type: 
  Country: None (occurrence: None)
  Receive Date: 20040525
  Receipt Date: 20040109
  Transmission Date: 20050107
  Serious: No
  Sender: FDA-Public Use
  Company Number: US-BRISTOL-MYERS SQUIBB COMPANY-12474896

PATIENT
  Age: 51 Year
  Sex: Female
  Weight: 79 kg

DRUGS (9)
  1. CYTOXAN [Suspect]
     Indication: SYSTEMIC LUPUS ERYTHEMATOSUS
     Route: 042
     Dates: start: 20031111, end: 20031111
  2. PRILOSEC [Concomitant]
  3. PREDNISONE [Concomitant]
  4. TIAZAC [Concomitant]
  5. DIOVAN [Concomitant]
  6. NEURONTIN [Concomitant]
  7. LEXAPRO [Concomitant]
  8. VICODIN [Concomitant]
  9. PROVENTIL [Concomitant]
     Route: 055

REACTIONS (3)
  - MUSCLE TWITCHING [None]
  - PAIN IN JAW [None]
  - TREMOR [None]
